FAERS Safety Report 17618887 (Version 1)
Quarter: 2020Q2

REPORT INFORMATION
  Report Type: Spontaneous
  Country: DE (occurrence: DE)
  Receive Date: 20200402
  Receipt Date: 20200402
  Transmission Date: 20200713
  Serious: Yes (Other)
  Sender: FDA-Public Use
  Company Number: DE-MYLANLABS-2020M1032533

PATIENT
  Age: 35 Year
  Sex: Male
  Weight: 84 kg

DRUGS (5)
  1. BUDESONIDE. [Suspect]
     Active Substance: BUDESONIDE
     Indication: COLITIS ULCERATIVE
     Dosage: 6 MILLIGRAM(6 UNK)
  2. BUDESONIDE. [Suspect]
     Active Substance: BUDESONIDE
     Dosage: 9 MILLIGRAM
  3. PREDNISONE. [Suspect]
     Active Substance: PREDNISONE
     Indication: COLITIS ULCERATIVE
     Dosage: 60 MG
  4. PREDNISOLONE. [Suspect]
     Active Substance: PREDNISOLONE
     Indication: COLITIS ULCERATIVE
     Dosage: 20 MG, QD
  5. AZATHIOPRINE. [Suspect]
     Active Substance: AZATHIOPRINE
     Indication: COLITIS ULCERATIVE
     Dosage: 2.5 MILLIGRAM/KILOGRAM (2.5 MG/KG SPLIT DOSAGE INTO MORNING AND EVENING)

REACTIONS (6)
  - Drug intolerance [Unknown]
  - Drug dependence [Unknown]
  - Iron deficiency anaemia [Unknown]
  - Quality of life decreased [Unknown]
  - Fatigue [Unknown]
  - Nausea [Unknown]
